FAERS Safety Report 16545085 (Version 7)
Quarter: 2019Q4

REPORT INFORMATION
  Report Type: Report from Study
  Country: CO (occurrence: CO)
  Receive Date: 20190709
  Receipt Date: 20191118
  Transmission Date: 20200122
  Serious: Yes (Hospitalization, Other)
  Sender: FDA-Public Use
  Company Number: CO-INCYTE CORPORATION-2018IN011599

PATIENT

DRUGS (2)
  1. JAKAVI [Suspect]
     Active Substance: RUXOLITINIB
     Indication: MYELOFIBROSIS
     Dosage: 40 MG, QD
     Route: 048
  2. IPRATROPIUM BROMIDE. [Concomitant]
     Active Substance: IPRATROPIUM BROMIDE
     Indication: PRODUCT USED FOR UNKNOWN INDICATION
     Dosage: UNK
     Route: 065

REACTIONS (21)
  - Feeding disorder [Unknown]
  - Neoplasm progression [Unknown]
  - Metastases to stomach [Unknown]
  - Choking [Unknown]
  - Gastritis [Unknown]
  - Oxygen saturation decreased [Unknown]
  - Inappropriate schedule of product administration [Unknown]
  - Hepatomegaly [Unknown]
  - Headache [Unknown]
  - Metastases to spleen [Unknown]
  - Prostatomegaly [Unknown]
  - Malaise [Unknown]
  - Nausea [Unknown]
  - Sleep disorder [Unknown]
  - Dizziness [Unknown]
  - Incontinence [Unknown]
  - Abdominal pain upper [Unknown]
  - Abdominal pain [Unknown]
  - Back pain [Unknown]
  - Splenomegaly [Unknown]
  - Fear [Unknown]

NARRATIVE: CASE EVENT DATE: 2016
